FAERS Safety Report 16146381 (Version 1)
Quarter: 2019Q2

REPORT INFORMATION
  Report Type: Spontaneous
  Country: US (occurrence: US)
  Receive Date: 20190402
  Receipt Date: 20190402
  Transmission Date: 20190711
  Serious: No
  Sender: FDA-Public Use
  Company Number: US-PFIZER INC-2019141124

PATIENT
  Age: 69 Year
  Sex: Male

DRUGS (6)
  1. OXYCODONE [Suspect]
     Active Substance: OXYCODONE
  2. DOCUSATE SODIUM. [Suspect]
     Active Substance: DOCUSATE SODIUM
     Indication: LAXATIVE SUPPORTIVE CARE
     Dosage: 100 MG, UNK
  3. ZOLOFT [Suspect]
     Active Substance: SERTRALINE HYDROCHLORIDE
  4. TYLENOL [Suspect]
     Active Substance: ACETAMINOPHEN
     Dosage: 500 MG, UNK
  5. ATIVAN [Suspect]
     Active Substance: LORAZEPAM
  6. VIODIN [Suspect]
     Active Substance: POVIDONE-IODINE

REACTIONS (1)
  - Drug hypersensitivity [Unknown]
